FAERS Safety Report 9734986 (Version 3)
Quarter: 2014Q1

REPORT INFORMATION
  Report Type: Spontaneous
  Country: IT (occurrence: IT)
  Receive Date: 20131206
  Receipt Date: 20140213
  Transmission Date: 20141002
  Serious: Yes (Hospitalization)
  Sender: FDA-Public Use
  Company Number: IT-RANBAXY-2013RR-75853

PATIENT
  Age: 35 Year
  Sex: Male
  Weight: 69 kg

DRUGS (8)
  1. CLARITHROMYCIN [Suspect]
     Indication: PHARYNGITIS
     Dosage: 1 DOSAGE UNIT/DAY
     Route: 048
     Dates: start: 20131013, end: 20131018
  2. PROGRAF [Suspect]
     Indication: PROPHYLAXIS AGAINST TRANSPLANT REJECTION
     Dosage: 6 MG/DAY
     Route: 048
     Dates: start: 20070101, end: 20131018
  3. MYFENAX [Concomitant]
     Indication: PROPHYLAXIS AGAINST TRANSPLANT REJECTION
     Dosage: 2 UNK, UNK
     Route: 048
     Dates: start: 20070101, end: 20131018
  4. CARDIOASPIRIN [Concomitant]
     Indication: PRODUCT USED FOR UNKNOWN INDICATION
     Dosage: 100 MG, UNK
     Route: 048
     Dates: start: 20120101, end: 20131018
  5. LOBIVON [Concomitant]
     Indication: PRODUCT USED FOR UNKNOWN INDICATION
     Dosage: 5 MG, UNK
     Route: 048
     Dates: start: 20120101, end: 20131018
  6. MAG 2 [Concomitant]
     Indication: PRODUCT USED FOR UNKNOWN INDICATION
     Dosage: 1 DF
     Route: 048
     Dates: start: 20120101, end: 20131018
  7. DELTACORTENE [Concomitant]
     Indication: PRODUCT USED FOR UNKNOWN INDICATION
     Dosage: 5 MG, UNK
     Route: 048
     Dates: start: 20120101, end: 20131018
  8. OMEPRAZOLE [Concomitant]
     Indication: PRODUCT USED FOR UNKNOWN INDICATION
     Dosage: 5 MG, UNK
     Route: 048
     Dates: start: 20120101, end: 20131018

REACTIONS (1)
  - Renal failure acute [Recovering/Resolving]
